FAERS Safety Report 11716751 (Version 2)
Quarter: 2015Q4

REPORT INFORMATION
  Report Type: Spontaneous
  Country: US (occurrence: US)
  Receive Date: 20151104
  Receipt Date: 20151120
  Transmission Date: 20160304
  Serious: No
  Sender: FDA-Public Use
  Company Number: US-ELI_LILLY_AND_COMPANY-US201109002075

PATIENT
  Sex: Female

DRUGS (3)
  1. FORTEO [Suspect]
     Active Substance: TERIPARATIDE
     Dosage: 20 UG, QD
  2. FORTEO [Suspect]
     Active Substance: TERIPARATIDE
     Indication: OSTEOPOROSIS
     Dosage: 20 UG, QD
     Dates: start: 201107, end: 20110830
  3. OMEPRAZOL [Concomitant]
     Active Substance: OMEPRAZOLE

REACTIONS (12)
  - Head discomfort [Unknown]
  - White blood cell count decreased [Unknown]
  - Injection site warmth [Recovering/Resolving]
  - Muscle rigidity [Unknown]
  - Gastrooesophageal reflux disease [Recovered/Resolved]
  - Injection site bruising [Unknown]
  - Injection site irritation [Unknown]
  - Injection site induration [Recovering/Resolving]
  - Injection site erythema [Recovering/Resolving]
  - Headache [Unknown]
  - Arthralgia [Unknown]
  - Growing pains [Unknown]
